FAERS Safety Report 7262178-4 (Version None)
Quarter: 2011Q1

REPORT INFORMATION
  Report Type: 
  Country: None (occurrence: None)
  Receive Date: 20110130
  Receipt Date: 20101202
  Transmission Date: 20110831
  Serious: Yes (Other)
  Sender: FDA-Public Use
  Company Number: US-ABBOTT-10P-163-0689301-00

PATIENT
  Age: 57 Year
  Sex: Female

DRUGS (2)
  1. COUMADIN [Concomitant]
     Indication: PRODUCT USED FOR UNKNOWN INDICATION
  2. HUMIRA [Suspect]
     Indication: RHEUMATOID ARTHRITIS
     Dates: start: 20100901

REACTIONS (3)
  - OEDEMA PERIPHERAL [None]
  - ARTHRITIS [None]
  - COUGH [None]
